FAERS Safety Report 18684002 (Version 3)
Quarter: 2021Q2

REPORT INFORMATION
  Report Type: Report from Study
  Country: US (occurrence: US)
  Receive Date: 20201230
  Receipt Date: 20210420
  Transmission Date: 20210717
  Serious: Yes (Hospitalization)
  Sender: FDA-Public Use
  Company Number: US-TAKEDA-2020TUS059815

PATIENT
  Sex: Female
  Weight: 97.51 kg

DRUGS (4)
  1. CEFDINIR. [Concomitant]
     Active Substance: CEFDINIR
  2. FLAGYL [Concomitant]
     Active Substance: METRONIDAZOLE\METRONIDAZOLE HYDROCHLORIDE
  3. DICYCLOMINE HCL [Concomitant]
     Active Substance: DICYCLOMINE HYDROCHLORIDE
  4. HUMAN NORMAL IMMUNOGLOBULIN; LIQUID [Suspect]
     Active Substance: HUMAN IMMUNOGLOBULIN G
     Indication: CHRONIC LYMPHOCYTIC LEUKAEMIA
     Dosage: 40 GRAM, MONTHLY
     Route: 042
     Dates: start: 20180907

REACTIONS (3)
  - Spinal fusion surgery [Unknown]
  - Laryngitis [Unknown]
  - Vocal cord paralysis [Unknown]
